FAERS Safety Report 9619244 (Version 2)
Quarter: 2013Q4

REPORT INFORMATION
  Report Type: Spontaneous
  Country: US (occurrence: US)
  Receive Date: 20131014
  Receipt Date: 20131015
  Transmission Date: 20140711
  Serious: Yes (Congenital Anomaly, Other)
  Sender: FDA-Public Use
  Company Number: US-ELI_LILLY_AND_COMPANY-US201310001743

PATIENT
  Sex: Female

DRUGS (3)
  1. PROZAC [Suspect]
     Indication: ANXIETY
     Dosage: 1 DF, UNKNOWN
     Route: 064
  2. PROZAC [Suspect]
     Indication: DEPRESSION
  3. PROZAC [Suspect]
     Indication: AFFECTIVE DISORDER

REACTIONS (2)
  - Ventricular septal defect [Unknown]
  - Foetal exposure during pregnancy [Unknown]
